FAERS Safety Report 18356178 (Version 2)
Quarter: 2020Q4

REPORT INFORMATION
  Report Type: Spontaneous
  Country: NZ (occurrence: NZ)
  Receive Date: 20201007
  Receipt Date: 20201213
  Transmission Date: 20210114
  Serious: Yes (Hospitalization)
  Sender: FDA-Public Use
  Company Number: NZ-JNJFOC-20200948328

PATIENT
  Sex: Male
  Weight: 93 kg

DRUGS (1)
  1. REMICADE [Suspect]
     Active Substance: INFLIXIMAB
     Indication: COLITIS ULCERATIVE
     Route: 042

REACTIONS (3)
  - Colitis ulcerative [Not Recovered/Not Resolved]
  - Drug specific antibody present [Unknown]
  - Organ failure [Unknown]
